FAERS Safety Report 7063473-4 (Version None)
Quarter: 2010Q4

REPORT INFORMATION
  Report Type: 
  Country: None (occurrence: None)
  Receive Date: 20101026
  Receipt Date: 20100419
  Transmission Date: 20110411
  Serious: No
  Sender: FDA-Public Use
  Company Number: US-ABBOTT-10P-163-0638979-00

PATIENT
  Sex: Female
  Weight: 81.72 kg

DRUGS (3)
  1. LUPRON DEPOT [Suspect]
     Indication: ENDOMETRIOSIS
     Route: 030
     Dates: start: 20091001
  2. NORETHINDRONE [Concomitant]
     Indication: HORMONE REPLACEMENT THERAPY
     Route: 048
  3. ZOLOFT [Concomitant]
     Indication: DEPRESSION
     Route: 048

REACTIONS (6)
  - BLOOD FOLLICLE STIMULATING HORMONE DECREASED [None]
  - DRUG INEFFECTIVE [None]
  - MENSTRUATION IRREGULAR [None]
  - OESTRADIOL INCREASED [None]
  - OVARIAN CYST [None]
  - PAIN [None]
